FAERS Safety Report 23654773 (Version 1)
Quarter: 2024Q1

REPORT INFORMATION
  Report Type: Spontaneous
  Country: US (occurrence: US)
  Receive Date: 20240320
  Receipt Date: 20240320
  Transmission Date: 20240410
  Serious: Yes (Hospitalization)
  Sender: FDA-Public Use
  Company Number: US-SUNOVION-2024SUN000198

PATIENT

DRUGS (20)
  1. LURASIDONE HYDROCHLORIDE [Suspect]
     Active Substance: LURASIDONE HYDROCHLORIDE
     Indication: Psychiatric symptom
     Dosage: UNK
     Route: 048
     Dates: start: 20190701, end: 20190901
  2. SERTRALINE [Concomitant]
     Active Substance: SERTRALINE HYDROCHLORIDE
     Indication: Anxiety
     Dosage: UNK
     Route: 065
     Dates: start: 20181225, end: 20191203
  3. SERTRALINE [Concomitant]
     Active Substance: SERTRALINE HYDROCHLORIDE
     Indication: Obsessive-compulsive disorder
  4. FLUVOXAMINE [Concomitant]
     Active Substance: FLUVOXAMINE
     Indication: Psychiatric symptom
     Dosage: UNK
     Route: 065
     Dates: start: 20190601, end: 20191001
  5. RISPERIDONE [Concomitant]
     Active Substance: RISPERIDONE
     Indication: Psychiatric symptom
     Dosage: UNK
     Route: 065
     Dates: start: 20190202, end: 20190902
  6. RISPERIDONE [Concomitant]
     Active Substance: RISPERIDONE
     Dosage: UNK, AS NECESSARY
     Route: 065
     Dates: start: 20190219, end: 20190919
  7. CLOMIPRAMINE [Concomitant]
     Active Substance: CLOMIPRAMINE
     Indication: Psychiatric symptom
     Dosage: UNK
     Route: 048
     Dates: start: 20190701, end: 20200701
  8. GABAPENTIN [Concomitant]
     Active Substance: GABAPENTIN
     Indication: Psychiatric symptom
     Dosage: UNK
     Route: 065
     Dates: start: 20190301, end: 20191101
  9. DIVALPROEX SODIUM [Concomitant]
     Active Substance: DIVALPROEX SODIUM
     Indication: Psychiatric symptom
     Dosage: UNK
     Route: 065
     Dates: start: 20190501, end: 20200701
  10. LORAZEPAM [Concomitant]
     Active Substance: LORAZEPAM
     Indication: Catatonia
     Dosage: UNK
     Route: 065
     Dates: start: 20181219, end: 20190901
  11. LORAZEPAM [Concomitant]
     Active Substance: LORAZEPAM
     Dosage: UNK
     Route: 048
  12. LORAZEPAM [Concomitant]
     Active Substance: LORAZEPAM
     Dosage: UNK
     Route: 042
  13. CLONIDINE [Concomitant]
     Active Substance: CLONIDINE
     Indication: Psychiatric symptom
     Dosage: UNK
     Route: 065
     Dates: start: 20190201, end: 20190429
  14. ACETYLCYSTEINE [Concomitant]
     Active Substance: ACETYLCYSTEINE
     Indication: Psychiatric symptom
     Dosage: UNK
     Route: 065
     Dates: start: 20190304
  15. PROPRANOLOL [Concomitant]
     Active Substance: PROPRANOLOL HYDROCHLORIDE
     Indication: Psychiatric symptom
     Dosage: UNK
     Route: 065
     Dates: start: 20181201, end: 20190701
  16. HALOPERIDOL [Concomitant]
     Active Substance: HALOPERIDOL
     Indication: Psychiatric symptom
     Dosage: UNK
     Route: 065
     Dates: start: 20190601, end: 20190628
  17. QUETIAPINE [Concomitant]
     Active Substance: QUETIAPINE
     Indication: Psychiatric symptom
     Dosage: UNK
     Route: 065
     Dates: start: 20190902
  18. CHLORPROMAZINE [Concomitant]
     Active Substance: CHLORPROMAZINE
     Indication: Psychiatric symptom
     Dosage: UNK
     Route: 065
     Dates: start: 20190719, end: 20190720
  19. HUMAN IMMUNOGLOBULIN G [Concomitant]
     Active Substance: HUMAN IMMUNOGLOBULIN G
     Indication: Immunoglobulin therapy
     Dosage: UNK, BID
     Route: 065
  20. MYCOPHENOLIC ACID [Concomitant]
     Active Substance: MYCOPHENOLIC ACID
     Indication: Encephalitis autoimmune
     Dosage: UNK
     Route: 065

REACTIONS (3)
  - Aggression [Recovering/Resolving]
  - Therapeutic product effect incomplete [Unknown]
  - Off label use [Unknown]

NARRATIVE: CASE EVENT DATE: 20190701
